FAERS Safety Report 7833519-1 (Version None)
Quarter: 2011Q4

REPORT INFORMATION
  Report Type: 
  Country: None (occurrence: None)
  Receive Date: 20111024
  Receipt Date: 20100201
  Transmission Date: 20120403
  Serious: No
  Sender: FDA-Public Use
  Company Number: US-BAYER-201013128NA

PATIENT
  Sex: Male

DRUGS (4)
  1. LEVITRA [Suspect]
     Dosage: CONSUMER WAS NOT TAKING WITH WATER
     Route: 048
  2. LEVITRA [Suspect]
     Route: 048
     Dates: start: 20080101, end: 20080101
  3. HYDROCHLOROTHIAZIDE [Concomitant]
  4. LISINOPRIL [Concomitant]

REACTIONS (4)
  - MIDDLE INSOMNIA [None]
  - BLOOD PRESSURE INCREASED [None]
  - HEADACHE [None]
  - ERECTILE DYSFUNCTION [None]
